FAERS Safety Report 5257124-9 (Version None)
Quarter: 2007Q1

REPORT INFORMATION
  Report Type: 
  Country: None (occurrence: None)
  Receive Date: 20070307
  Receipt Date: 20070221
  Transmission Date: 20070707
  Serious: Yes (Hospitalization)
  Sender: FDA-Public Use
  Company Number: 2007SE01053

PATIENT
  Age: 21343 Day
  Sex: Female

DRUGS (12)
  1. SYMBICORT [Suspect]
     Indication: ASTHMA
     Dosage: 320/9 UG/INHALATION, BID
     Route: 055
     Dates: start: 20051025, end: 20061116
  2. PULMICORT [Suspect]
     Indication: ASTHMA
     Route: 055
     Dates: start: 20051025, end: 20061116
  3. TERBUTALINE TURBUHALER [Suspect]
     Indication: ASTHMA
     Route: 055
     Dates: start: 20051025, end: 20061116
  4. SALURES-K [Concomitant]
     Indication: HYPERTENSION
     Route: 048
  5. ZANIDIP [Concomitant]
     Indication: HYPERTENSION
     Route: 048
  6. ARTROX [Concomitant]
     Indication: ARTHRALGIA
     Route: 048
  7. REDUCTIL [Concomitant]
     Indication: OBESITY
     Route: 048
  8. FLUTIDE NASAL [Concomitant]
     Indication: CONJUNCTIVITIS ALLERGIC
     Route: 045
  9. ORUDIS [Concomitant]
     Indication: ARTHROPATHY
     Dates: start: 20060301
  10. CLARITIN [Concomitant]
     Indication: CONJUNCTIVITIS ALLERGIC
     Route: 048
  11. ORUDIS RETARD [Concomitant]
     Indication: ARTHRALGIA
     Route: 048
     Dates: start: 20050511, end: 20061111
  12. ORUDIS RETARD [Concomitant]
     Route: 048
     Dates: start: 20061116

REACTIONS (2)
  - TRACHEAL NEOPLASM [None]
  - VOCAL CORD THICKENING [None]
